FAERS Safety Report 8613297-9 (Version None)
Quarter: 2012Q3

REPORT INFORMATION
  Report Type: 
  Country: None (occurrence: None)
  Receive Date: 20120822
  Receipt Date: 20120720
  Transmission Date: 20120928
  Serious: Yes (Disabling, Other)
  Sender: FDA-Public Use
  Company Number: US-009507513-1202USA01976

PATIENT

DRUGS (4)
  1. ALENDRONATE SODIUM [Suspect]
     Dosage: 70 MG, QW
     Dates: start: 20080310, end: 20100301
  2. ALENDRONATE SODIUM [Suspect]
     Dosage: 70 MG, UNK
     Dates: start: 20100402, end: 20100801
  3. FOSAMAX [Suspect]
     Dosage: 70 MG, QW
     Route: 048
     Dates: start: 20100304
  4. FOSAMAX [Suspect]
     Indication: OSTEOPOROSIS
     Dosage: 70 MG, QW
     Route: 048
     Dates: end: 20080301

REACTIONS (21)
  - OSTEONECROSIS OF JAW [None]
  - GASTROOESOPHAGEAL REFLUX DISEASE [None]
  - TOOTH DISORDER [None]
  - DENTAL CARIES [None]
  - INTERVERTEBRAL DISC DISORDER [None]
  - BLOOD CHOLESTEROL INCREASED [None]
  - THYROID DISORDER [None]
  - RHEUMATOID ARTHRITIS [None]
  - LORDOSIS [None]
  - DEPRESSION [None]
  - BACK PAIN [None]
  - ADVERSE EVENT [None]
  - ORAL INFECTION [None]
  - ORAL DISORDER [None]
  - ALVEOLAR OSTEITIS [None]
  - TOOTH FRACTURE [None]
  - SPINAL OSTEOARTHRITIS [None]
  - SCOLIOSIS [None]
  - IMPAIRED HEALING [None]
  - FISTULA DISCHARGE [None]
  - HEADACHE [None]
